FAERS Safety Report 9993688 (Version 1)
Quarter: 2014Q1

REPORT INFORMATION
  Report Type: Spontaneous
  Country: NL (occurrence: NL)
  Receive Date: 20140310
  Receipt Date: 20140310
  Transmission Date: 20141002
  Serious: Yes (Hospitalization)
  Sender: FDA-Public Use
  Company Number: US-ASTRAZENECA-2014SE16203

PATIENT
  Age: 10 Month
  Sex: Female
  Weight: 8.6 kg

DRUGS (2)
  1. SYNAGIS [Suspect]
     Indication: PREMATURE BABY
     Dosage: 130, MONTHLY
     Route: 030
     Dates: start: 20131223, end: 20131223
  2. SYNAGIS [Suspect]
     Indication: PREMATURE BABY
     Dosage: 130, MONTHLY
     Route: 030
     Dates: start: 20140118, end: 20140118

REACTIONS (2)
  - Dyspnoea [Recovered/Resolved]
  - Pyrexia [Recovered/Resolved]
